FAERS Safety Report 12739950 (Version 4)
Quarter: 2017Q1

REPORT INFORMATION
  Report Type: Report from Study
  Country: None (occurrence: RO)
  Receive Date: 20160913
  Receipt Date: 20170320
  Transmission Date: 20170428
  Serious: Yes (Death, Hospitalization, Other)
  Sender: FDA-Public Use
  Company Number: RO-ABBVIE-16K-135-1715709-00

PATIENT
  Sex: Female

DRUGS (1)
  1. DUODOPA [Suspect]
     Active Substance: CARBIDOPA\LEVODOPA
     Indication: PARKINSON^S DISEASE
     Dosage: 19-20/24 H: CR= 6,9, ED=5,2, MD= 9
     Route: 050
     Dates: start: 20121018, end: 20170227

REACTIONS (13)
  - Dysphonia [Not Recovered/Not Resolved]
  - Fatigue [Recovering/Resolving]
  - Cardio-respiratory arrest [Fatal]
  - Drug ineffective [Recovering/Resolving]
  - Mixed dementia [Unknown]
  - General physical health deterioration [Recovering/Resolving]
  - On and off phenomenon [Unknown]
  - Urinary tract infection [Recovering/Resolving]
  - Parkinson^s disease [Not Recovered/Not Resolved]
  - Stoma site hypergranulation [Recovered/Resolved]
  - Major depression [Unknown]
  - Dysphagia [Not Recovered/Not Resolved]
  - Stoma site haemorrhage [Recovered/Resolved]

NARRATIVE: CASE EVENT DATE: 201608
